FAERS Safety Report 5055189-0 (Version None)
Quarter: 2006Q3

REPORT INFORMATION
  Report Type: 
  Country: None (occurrence: None)
  Receive Date: 20060717
  Receipt Date: 20060629
  Transmission Date: 20061208
  Serious: No
  Sender: FDA-Public Use
  Company Number: SP00891

PATIENT
  Age: 77 Year
  Sex: Male

DRUGS (1)
  1. VISICOL [Suspect]
     Indication: COLONOSCOPY
     Dosage: ORAL
     Route: 048
     Dates: start: 20060328, end: 20060329

REACTIONS (3)
  - DROOLING [None]
  - FOREIGN BODY TRAUMA [None]
  - OESOPHAGEAL OBSTRUCTION [None]
